FAERS Safety Report 24160489 (Version 2)
Quarter: 2024Q3

REPORT INFORMATION
  Report Type: Spontaneous
  Country: US (occurrence: US)
  Receive Date: 20240801
  Receipt Date: 20240816
  Transmission Date: 20241017
  Serious: Yes (Death, Hospitalization)
  Sender: TEVA
  Company Number: US-TEVA-VS-3226003

PATIENT
  Age: 12 Year
  Sex: Male

DRUGS (18)
  1. TOBRAMYCIN [Suspect]
     Active Substance: TOBRAMYCIN\TOBRAMYCIN SULFATE
     Indication: Escherichia bacteraemia
     Route: 065
  2. 1-antitrypsin [Concomitant]
     Indication: Graft versus host disease in liver
     Route: 065
  3. POLYMYXIN B [Suspect]
     Active Substance: POLYMYXIN B
     Indication: Escherichia bacteraemia
     Dosage: LOADING DOSE: 1000000 U
     Route: 065
  4. POLYMYXIN B [Suspect]
     Active Substance: POLYMYXIN B
     Indication: Escherichia bacteraemia
     Dosage: 12500 U/KG
     Route: 065
  5. RUXOLITINIB [Concomitant]
     Active Substance: RUXOLITINIB
     Indication: Graft versus host disease in liver
     Route: 065
  6. METHYLPREDNISOLONE [Concomitant]
     Active Substance: METHYLPREDNISOLONE
     Indication: Graft versus host disease in liver
     Route: 065
  7. VANCOMYCIN [Concomitant]
     Active Substance: VANCOMYCIN
     Indication: Evidence based treatment
     Route: 065
  8. TACROLIMUS [Concomitant]
     Active Substance: TACROLIMUS
     Indication: Graft versus host disease in liver
     Route: 065
  9. METRONIDAZOLE [Concomitant]
     Active Substance: METRONIDAZOLE
     Indication: Evidence based treatment
     Route: 065
  10. VEDOLIZUMAB [Concomitant]
     Active Substance: VEDOLIZUMAB
     Indication: Graft versus host disease in liver
     Route: 065
  11. AZTREONAM [Suspect]
     Active Substance: AZTREONAM
     Indication: Escherichia bacteraemia
     Route: 065
  12. CEFIDEROCOL [Suspect]
     Active Substance: CEFIDEROCOL
     Indication: Escherichia bacteraemia
     Route: 065
  13. CEFTRIAXONE [Concomitant]
     Active Substance: CEFTRIAXONE\CEFTRIAXONE SODIUM
     Indication: Evidence based treatment
     Route: 065
  14. MEROPENEM [Concomitant]
     Active Substance: MEROPENEM
     Indication: Evidence based treatment
     Route: 065
  15. AVIBACTAM SODIUM\CEFTAZIDIME [Suspect]
     Active Substance: AVIBACTAM SODIUM\CEFTAZIDIME
     Indication: Escherichia bacteraemia
     Route: 065
  16. BELUMOSUDIL [Concomitant]
     Active Substance: BELUMOSUDIL
     Indication: Graft versus host disease in liver
     Route: 065
  17. LEVOFLOXACIN [Concomitant]
     Active Substance: LEVOFLOXACIN
     Indication: Evidence based treatment
     Route: 065
  18. BASILIXIMAB [Concomitant]
     Active Substance: BASILIXIMAB
     Indication: Graft versus host disease in liver
     Route: 065

REACTIONS (2)
  - Pathogen resistance [Fatal]
  - Drug ineffective [Fatal]
